FAERS Safety Report 9984180 (Version 1)
Quarter: 2014Q1

REPORT INFORMATION
  Report Type: Report from Study
  Country: US (occurrence: US)
  Receive Date: 20140307
  Receipt Date: 20140307
  Transmission Date: 20141002
  Serious: No
  Sender: FDA-Public Use
  Company Number: US-ABBVIE-13P-163-1182451-00

PATIENT
  Age: 48 Year
  Sex: Male
  Weight: 85.81 kg

DRUGS (4)
  1. HUMIRA [Suspect]
     Indication: PSORIASIS
     Dosage: ONCE
     Dates: start: 20131107, end: 20131107
  2. HUMIRA [Suspect]
     Dosage: ONCE
     Dates: start: 20131114, end: 20131114
  3. HUMIRA [Suspect]
     Dates: start: 20131128
  4. METOPROLOL [Concomitant]
     Indication: ATRIAL FIBRILLATION

REACTIONS (2)
  - Respiratory tract congestion [Recovered/Resolved]
  - Injection site pruritus [Not Recovered/Not Resolved]
